FAERS Safety Report 7342696-0 (Version None)
Quarter: 2011Q1

REPORT INFORMATION
  Report Type: 
  Country: None (occurrence: None)
  Receive Date: 20110310
  Receipt Date: 20110308
  Transmission Date: 20110831
  Serious: Yes (Death)
  Sender: FDA-Public Use
  Company Number: FR-PFIZER INC-2011050195

PATIENT
  Age: 83 Year
  Sex: Female

DRUGS (4)
  1. DAFALGAN [Concomitant]
     Indication: PAIN
     Dosage: UNK 6X/DAYS
     Route: 048
     Dates: start: 20110124, end: 20110202
  2. CELEBREX [Suspect]
     Indication: PAIN
     Dosage: 200 MG, 1X/DAY
     Route: 048
     Dates: start: 20110124, end: 20110202
  3. LOVENOX [Suspect]
     Indication: THROMBOSIS PROPHYLAXIS
     Dosage: 4000 IU, 1X/DAY
     Route: 058
     Dates: start: 20110124, end: 20110203
  4. MOPRAL [Suspect]
     Indication: PROPHYLAXIS AGAINST GASTROINTESTINAL ULCER
     Dosage: 20 MG, 1X/DAY
     Route: 048
     Dates: start: 20110124, end: 20110202

REACTIONS (4)
  - METABOLIC ACIDOSIS [None]
  - HYPERKALAEMIA [None]
  - VENTRICULAR TACHYCARDIA [None]
  - RENAL FAILURE ACUTE [None]
